FAERS Safety Report 6080397-X (Version None)
Quarter: 2009Q1

REPORT INFORMATION
  Report Type: 
  Country: None (occurrence: None)
  Receive Date: 20090217
  Receipt Date: 20090211
  Transmission Date: 20090719
  Serious: Yes (Hospitalization)
  Sender: FDA-Public Use
  Company Number: NO-WYE-G03117209

PATIENT
  Age: 50 Year
  Sex: Female

DRUGS (2)
  1. EFFEXOR [Suspect]
     Indication: SUICIDAL IDEATION
     Dosage: 150-300 MG PER DAY
     Dates: start: 20050101, end: 20090101
  2. EFFEXOR [Suspect]
     Dosage: 200 CAPSULE EVERY 1 TOT
     Dates: start: 20090101, end: 20090101

REACTIONS (7)
  - ANXIETY [None]
  - CONVULSION [None]
  - HALLUCINATION [None]
  - INTENTIONAL OVERDOSE [None]
  - PALPITATIONS [None]
  - PARAESTHESIA [None]
  - PULMONARY OEDEMA [None]
